FAERS Safety Report 9997587 (Version 1)
Quarter: 2014Q1

REPORT INFORMATION
  Report Type: Spontaneous
  Country: US (occurrence: None)
  Receive Date: 20140225
  Receipt Date: 20140225
  Transmission Date: 20141002
  Serious: Yes (Other)
  Sender: FDA-Public Use
  Company Number: 2013-361

PATIENT
  Age: 65 Year
  Sex: Male

DRUGS (3)
  1. PRIALT (ZICONOTIDE) INTRATHECAL INFUSION [Suspect]
     Indication: NEURITIS
     Dosage: ONCE/HOUR
     Route: 037
  2. PRIALT (ZICONOTIDE) INTRATHECAL INFUSION [Suspect]
     Indication: RADICULITIS
     Dosage: ONCE/HOUR
     Route: 037
  3. PRIALT (ZICONOTIDE) INTRATHECAL INFUSION [Suspect]
     Indication: CONGENITAL NEUROPATHY
     Dosage: ONCE/HOUR
     Route: 037

REACTIONS (7)
  - Hallucination, auditory [None]
  - Hyperchlorhydria [None]
  - Nausea [None]
  - Memory impairment [None]
  - Balance disorder [None]
  - Dizziness [None]
  - Dysarthria [None]
